FAERS Safety Report 19357995 (Version 2)
Quarter: 2021Q2

REPORT INFORMATION
  Report Type: Spontaneous
  Country: US (occurrence: US)
  Receive Date: 20210601
  Receipt Date: 20210616
  Transmission Date: 20210717
  Serious: No
  Sender: FDA-Public Use
  Company Number: US-ASTRAZENECA-2021A419201

PATIENT
  Age: 74 Year
  Sex: Female
  Weight: 52.2 kg

DRUGS (2)
  1. ASPRIN [Suspect]
     Active Substance: ASPIRIN
     Indication: ANTICOAGULANT THERAPY
     Route: 048
     Dates: start: 2017, end: 2021
  2. BRILINTA [Suspect]
     Active Substance: TICAGRELOR
     Indication: THROMBECTOMY
     Route: 048
     Dates: start: 2018, end: 2021

REACTIONS (3)
  - Gastric haemorrhage [Unknown]
  - Fatigue [Recovering/Resolving]
  - Anaemia [Recovering/Resolving]

NARRATIVE: CASE EVENT DATE: 2018
